FAERS Safety Report 19936106 (Version 1)
Quarter: 2021Q4

REPORT INFORMATION
  Report Type: Spontaneous
  Country: FR (occurrence: FR)
  Receive Date: 20211008
  Receipt Date: 20211008
  Transmission Date: 20220304
  Serious: Yes (Other)
  Sender: FDA-Public Use
  Company Number: 2021A762030

PATIENT
  Age: 66 Year
  Sex: Female

DRUGS (6)
  1. TAGRISSO [Suspect]
     Active Substance: OSIMERTINIB
     Indication: Lung neoplasm malignant
     Route: 048
     Dates: end: 202010
  2. CRIZOTINIB [Concomitant]
     Active Substance: CRIZOTINIB
     Route: 065
     Dates: start: 201806
  3. CISPLATIN [Concomitant]
     Active Substance: CISPLATIN
     Route: 065
     Dates: start: 201903
  4. ETOSPOSIDE [Concomitant]
     Route: 065
     Dates: start: 201903
  5. TAXOL [Concomitant]
     Active Substance: PACLITAXEL
     Route: 065
     Dates: start: 201912
  6. ALECTINIB [Concomitant]
     Active Substance: ALECTINIB
     Route: 065
     Dates: start: 202012

REACTIONS (3)
  - Interstitial lung disease [Not Recovered/Not Resolved]
  - Malignant neoplasm progression [Not Recovered/Not Resolved]
  - Off label use [Recovered/Resolved]

NARRATIVE: CASE EVENT DATE: 20181201
